FAERS Safety Report 23743358 (Version 1)
Quarter: 2024Q2

REPORT INFORMATION
  Report Type: Spontaneous
  Country: GB (occurrence: GB)
  Receive Date: 20240415
  Receipt Date: 20240415
  Transmission Date: 20240716
  Serious: Yes (Hospitalization)
  Sender: FDA-Public Use
  Company Number: GB-AMRYT PHARMACEUTICALS DAC-AEGR007036

PATIENT

DRUGS (1)
  1. METRELEPTIN [Suspect]
     Active Substance: METRELEPTIN
     Indication: Product used for unknown indication
     Dosage: 5.8 MILLIGRAM, QD
     Route: 058
     Dates: start: 202208

REACTIONS (1)
  - Eye haemorrhage [Unknown]
